FAERS Safety Report 16326541 (Version 1)
Quarter: 2019Q2

REPORT INFORMATION
  Report Type: Spontaneous
  Country: MT (occurrence: MT)
  Receive Date: 20190517
  Receipt Date: 20190517
  Transmission Date: 20190711
  Serious: Yes (Hospitalization, Other)
  Sender: FDA-Public Use
  Company Number: MT-IMPAX LABORATORIES, LLC-2019-IPXL-00955

PATIENT
  Age: 80 Year
  Sex: Female

DRUGS (5)
  1. OMEPRAZOLE DELAYED RELEASE [Suspect]
     Active Substance: OMEPRAZOLE
     Indication: HELICOBACTER INFECTION
     Dosage: 20 MILLIGRAM, 2 /DAY
     Route: 065
  2. WARFARIN [Concomitant]
     Active Substance: WARFARIN
     Indication: PRODUCT USED FOR UNKNOWN INDICATION
     Dosage: UNK
     Route: 065
  3. CLARITHROMYCIN. [Suspect]
     Active Substance: CLARITHROMYCIN
     Indication: HELICOBACTER INFECTION
     Dosage: 500 MILLIGRAM, 2 /DAY
     Route: 065
  4. AMOXICILLIN. [Suspect]
     Active Substance: AMOXICILLIN
     Indication: HELICOBACTER INFECTION
     Dosage: 1 GRAM, 2 /DAY
     Route: 065
  5. DIGOXIN. [Suspect]
     Active Substance: DIGOXIN
     Indication: HEART RATE ABNORMAL
     Dosage: 0.125 MILLIGRAM, DAILY
     Route: 065

REACTIONS (5)
  - Ventricular tachycardia [Unknown]
  - Toxicity to various agents [Unknown]
  - Acute kidney injury [Unknown]
  - Hyperkalaemia [Unknown]
  - Drug interaction [Unknown]
